FAERS Safety Report 6875489-9 (Version None)
Quarter: 2010Q3

REPORT INFORMATION
  Report Type: 
  Country: None (occurrence: None)
  Receive Date: 20100727
  Receipt Date: 20100716
  Transmission Date: 20110219
  Serious: Yes (Hospitalization)
  Sender: FDA-Public Use
  Company Number: BR-JNJFOC-20100706203

PATIENT
  Age: 37 Year
  Sex: Male

DRUGS (4)
  1. ITRACONAZOLE [Suspect]
     Indication: SPOROTRICHOSIS
     Route: 065
  2. ZIDOVUDINE [Suspect]
     Indication: ANTIRETROVIRAL THERAPY
     Route: 065
  3. NELFINAVIR [Suspect]
     Indication: ANTIRETROVIRAL THERAPY
     Route: 065
  4. DIDANOSINE [Suspect]
     Indication: ANTIRETROVIRAL THERAPY
     Route: 065

REACTIONS (1)
  - MENINGITIS [None]
